FAERS Safety Report 8759232 (Version 2)
Quarter: 2014Q4

REPORT INFORMATION
  Report Type: Spontaneous
  Country: US (occurrence: US)
  Receive Date: 20120829
  Receipt Date: 20141216
  Transmission Date: 20150529
  Serious: Yes (Hospitalization)
  Sender: FDA-Public Use
  Company Number: US-ASTRAZENECA-2010SE54504

PATIENT
  Age: 46 Year
  Sex: Female
  Weight: 129.3 kg

DRUGS (54)
  1. SEROQUEL XR [Suspect]
     Active Substance: QUETIAPINE FUMARATE
     Indication: SLEEP DISORDER
     Route: 048
  2. SEROQUEL XR [Suspect]
     Active Substance: QUETIAPINE FUMARATE
     Indication: MANIA
     Route: 048
  3. SEROQUEL XR [Suspect]
     Active Substance: QUETIAPINE FUMARATE
     Indication: SLEEP DISORDER
     Route: 048
     Dates: end: 20121026
  4. SEROQUEL XR [Suspect]
     Active Substance: QUETIAPINE FUMARATE
     Indication: SLEEP DISORDER
     Route: 048
  5. SEROQUEL XR [Suspect]
     Active Substance: QUETIAPINE FUMARATE
     Indication: SCHIZOPHRENIA
     Route: 048
  6. GLYBURIDE. [Concomitant]
     Active Substance: GLYBURIDE
     Indication: DIABETES MELLITUS
     Route: 048
     Dates: start: 2006
  7. VISTARIL [Concomitant]
     Active Substance: HYDROXYZINE PAMOATE
     Indication: MIGRAINE
     Route: 048
     Dates: start: 1992
  8. KLONOPIN [Concomitant]
     Active Substance: CLONAZEPAM
     Indication: ANXIETY
     Route: 048
     Dates: start: 2011
  9. CLONAZEPAM. [Concomitant]
     Active Substance: CLONAZEPAM
     Indication: ANXIETY
     Route: 048
  10. SEROQUEL XR [Suspect]
     Active Substance: QUETIAPINE FUMARATE
     Indication: SCHIZOPHRENIA
     Route: 048
  11. SEROQUEL XR [Suspect]
     Active Substance: QUETIAPINE FUMARATE
     Indication: BIPOLAR DISORDER
     Route: 048
     Dates: start: 1999
  12. SEROQUEL XR [Suspect]
     Active Substance: QUETIAPINE FUMARATE
     Indication: SLEEP DISORDER
     Dosage: GENERIC, 400 MH AT NIGHT
     Route: 048
  13. METOPROLOL [Suspect]
     Active Substance: METOPROLOL
     Indication: BLOOD PRESSURE
     Route: 048
     Dates: start: 2006
  14. PULMICORT FLEXHALER [Suspect]
     Active Substance: BUDESONIDE
     Route: 055
     Dates: start: 201412
  15. BLOOD PRESSURE MEDICINE [Concomitant]
     Active Substance: UNSPECIFIED INGREDIENT
  16. BACLOFEN. [Concomitant]
     Active Substance: BACLOFEN
     Indication: MUSCLE SPASMS
     Route: 048
  17. ALBUTEROL. [Concomitant]
     Active Substance: ALBUTEROL
     Indication: ASTHMA
     Dosage: 2 PUFFS QID
     Route: 055
  18. SEROQUEL XR [Suspect]
     Active Substance: QUETIAPINE FUMARATE
     Indication: MANIA
     Route: 048
     Dates: start: 1999
  19. SEROQUEL XR [Suspect]
     Active Substance: QUETIAPINE FUMARATE
     Indication: MANIA
     Dosage: GENERIC, 400 MH AT NIGHT
     Route: 048
  20. SEROQUEL XR [Suspect]
     Active Substance: QUETIAPINE FUMARATE
     Indication: SLEEP DISORDER
     Dosage: PHARMACIST INSTRUCTED HER TO SPLIT SEROQUEL XR IN HALF
     Route: 048
  21. SEROQUEL XR [Suspect]
     Active Substance: QUETIAPINE FUMARATE
     Indication: SCHIZOPHRENIA
     Dosage: PHARMACIST INSTRUCTED HER TO SPLIT SEROQUEL XR IN HALF
     Route: 048
  22. METOPROLOL [Suspect]
     Active Substance: METOPROLOL
     Indication: BLOOD PRESSURE
     Route: 048
     Dates: start: 2007
  23. GLYBURIDE. [Concomitant]
     Active Substance: GLYBURIDE
     Indication: DIABETES MELLITUS
     Dosage: THREE TIMES A DAY
     Route: 048
  24. BACLOFEN. [Concomitant]
     Active Substance: BACLOFEN
     Indication: MUSCLE SPASMS
     Route: 048
     Dates: start: 2008
  25. VITAMIN B12 [Concomitant]
     Active Substance: CYANOCOBALAMIN
     Dosage: Q3WK
     Route: 050
  26. SEROQUEL XR [Suspect]
     Active Substance: QUETIAPINE FUMARATE
     Indication: SLEEP DISORDER
     Route: 048
     Dates: start: 1999
  27. SEROQUEL XR [Suspect]
     Active Substance: QUETIAPINE FUMARATE
     Indication: SCHIZOPHRENIA
     Route: 048
     Dates: start: 1999
  28. SEROQUEL XR [Suspect]
     Active Substance: QUETIAPINE FUMARATE
     Indication: MANIA
     Route: 048
  29. SEROQUEL XR [Suspect]
     Active Substance: QUETIAPINE FUMARATE
     Indication: BIPOLAR DISORDER
     Route: 048
  30. OTHER MEDICINES SHE CANNOT REMEMBER [Concomitant]
  31. PREMARIN [Concomitant]
     Active Substance: ESTROGENS, CONJUGATED
     Indication: MENOPAUSE
     Route: 048
     Dates: start: 2010
  32. LORTAB [Concomitant]
     Active Substance: ACETAMINOPHEN\HYDROCODONE BITARTRATE
     Indication: BACK PAIN
     Route: 048
  33. SEROQUEL XR [Suspect]
     Active Substance: QUETIAPINE FUMARATE
     Indication: BIPOLAR DISORDER
     Route: 048
     Dates: end: 20121026
  34. METOPROLOL [Suspect]
     Active Substance: METOPROLOL
     Indication: BLOOD PRESSURE
     Route: 048
     Dates: start: 2006
  35. FLEXERIL [Concomitant]
     Active Substance: CYCLOBENZAPRINE HYDROCHLORIDE
     Indication: BACK PAIN
     Route: 048
     Dates: start: 1987
  36. BACLOFEN. [Concomitant]
     Active Substance: BACLOFEN
     Indication: BACK PAIN
     Route: 048
  37. RESTORIL PAMOATE [Concomitant]
     Indication: HEADACHE
     Route: 048
     Dates: start: 1990
  38. RESTORIL PAMOATE [Concomitant]
     Indication: HEADACHE
     Dosage: TAKES AS NEEDED
     Route: 048
  39. SEROQUEL XR [Suspect]
     Active Substance: QUETIAPINE FUMARATE
     Indication: SCHIZOPHRENIA
     Dosage: GENERIC, 400 MH AT NIGHT
     Route: 048
  40. SEROQUEL XR [Suspect]
     Active Substance: QUETIAPINE FUMARATE
     Indication: MANIA
     Dosage: PHARMACIST INSTRUCTED HER TO SPLIT SEROQUEL XR IN HALF
     Route: 048
  41. ALBUTEROL. [Concomitant]
     Active Substance: ALBUTEROL
     Indication: MULTIPLE ALLERGIES
     Dosage: 2 PUFFS QID
     Route: 055
  42. LYRICA [Concomitant]
     Active Substance: PREGABALIN
     Indication: NEURALGIA
     Route: 048
  43. LANTUS [Concomitant]
     Active Substance: INSULIN GLARGINE
     Indication: DIABETES MELLITUS
     Route: 058
     Dates: start: 201403
  44. HUMULOG [Concomitant]
     Indication: DIABETES MELLITUS
     Route: 058
     Dates: start: 201403
  45. SEROQUEL XR [Suspect]
     Active Substance: QUETIAPINE FUMARATE
     Indication: BIPOLAR DISORDER
     Dosage: PHARMACIST INSTRUCTED HER TO SPLIT SEROQUEL XR IN HALF
     Route: 048
  46. METFORMIN [Concomitant]
     Active Substance: METFORMIN HYDROCHLORIDE
     Indication: DIABETES MELLITUS
     Route: 048
     Dates: start: 2006
  47. BACLOFEN. [Concomitant]
     Active Substance: BACLOFEN
     Indication: BACK PAIN
     Route: 048
     Dates: start: 2008
  48. BRINTELLIX [Concomitant]
     Active Substance: VORTIOXETINE HYDROBROMIDE
     Indication: DEPRESSION
     Route: 048
     Dates: start: 201411
  49. SEROQUEL XR [Suspect]
     Active Substance: QUETIAPINE FUMARATE
     Indication: BIPOLAR DISORDER
     Route: 048
  50. SEROQUEL XR [Suspect]
     Active Substance: QUETIAPINE FUMARATE
     Indication: SCHIZOPHRENIA
     Route: 048
     Dates: end: 20121026
  51. SEROQUEL XR [Suspect]
     Active Substance: QUETIAPINE FUMARATE
     Indication: MANIA
     Route: 048
     Dates: end: 20121026
  52. SEROQUEL XR [Suspect]
     Active Substance: QUETIAPINE FUMARATE
     Indication: BIPOLAR DISORDER
     Dosage: GENERIC, 400 MH AT NIGHT
     Route: 048
  53. CLONAZEPAM. [Concomitant]
     Active Substance: CLONAZEPAM
     Indication: ANXIETY
     Dosage: UP TO 2 MG DAILY AS NEEDED
     Route: 048
  54. PRAMPENOLE [Concomitant]
     Indication: RESTLESS LEGS SYNDROME
     Route: 048

REACTIONS (24)
  - Menopause [Unknown]
  - Back disorder [Unknown]
  - Cough [Unknown]
  - Headache [Unknown]
  - Muscle spasms [Unknown]
  - Drug ineffective [Unknown]
  - Drug dose omission [Not Recovered/Not Resolved]
  - Hypertension [Unknown]
  - Restlessness [Not Recovered/Not Resolved]
  - Dysarthria [Unknown]
  - Tibia fracture [Unknown]
  - Anxiety [Unknown]
  - Off label use [Unknown]
  - Diabetes mellitus [Unknown]
  - Fall [Unknown]
  - Blood glucose decreased [Unknown]
  - Hyperhidrosis [Unknown]
  - Feeling abnormal [Not Recovered/Not Resolved]
  - Road traffic accident [Unknown]
  - Weight increased [Unknown]
  - Product use issue [Unknown]
  - Upper limb fracture [Unknown]
  - Influenza [Unknown]
  - Hypokinesia [Unknown]

NARRATIVE: CASE EVENT DATE: 2005
